FAERS Safety Report 6100269-1 (Version None)
Quarter: 2009Q1

REPORT INFORMATION
  Report Type: 
  Country: None (occurrence: None)
  Receive Date: 20090303
  Receipt Date: 20090219
  Transmission Date: 20090719
  Serious: Yes (Hospitalization)
  Sender: FDA-Public Use
  Company Number: FR-PFIZER INC-2009167695

PATIENT

DRUGS (5)
  1. ALDACTONE [Suspect]
     Indication: HYPERTENSION
     Dosage: 25 MG, UNK
     Route: 048
     Dates: end: 20080428
  2. ALDACTONE [Suspect]
     Dosage: 25 MG, UNK
     Route: 048
     Dates: start: 20080429
  3. ZECLAR [Suspect]
     Indication: SINUSITIS
     Route: 048
     Dates: start: 20080425, end: 20080428
  4. DETENSIEL [Suspect]
     Indication: HYPERTENSION
     Dosage: UNK
     Route: 048
     Dates: end: 20080428
  5. DETENSIEL [Suspect]
     Dosage: UNK
     Route: 048
     Dates: start: 20080429

REACTIONS (1)
  - LIVER DISORDER [None]
